FAERS Safety Report 4734897-2 (Version None)
Quarter: 2005Q3

REPORT INFORMATION
  Report Type: 
  Country: None (occurrence: None)
  Receive Date: 20050804
  Receipt Date: 20050726
  Transmission Date: 20060218
  Serious: Yes (Hospitalization, Other)
  Sender: FDA-Public Use
  Company Number: PHEH2005US08241

PATIENT
  Age: 49 Year
  Sex: Female

DRUGS (4)
  1. COZAAR [Concomitant]
     Indication: HYPERTENSION
  2. ZOLOFT [Concomitant]
  3. LESCOL XL [Suspect]
     Indication: HYPERCHOLESTEROLAEMIA
     Dosage: 80 MG, QD
     Dates: start: 20050723, end: 20050725
  4. LESCOL XL [Suspect]
     Dosage: 80 MG, QD
     Route: 048
     Dates: start: 20050718

REACTIONS (4)
  - CHEST DISCOMFORT [None]
  - CHEST PAIN [None]
  - LIMB DISCOMFORT [None]
  - MUSCULOSKELETAL DISCOMFORT [None]
